FAERS Safety Report 6906251-6 (Version None)
Quarter: 2010Q3

REPORT INFORMATION
  Report Type: 
  Country: None (occurrence: None)
  Receive Date: 20100802
  Receipt Date: 20100720
  Transmission Date: 20110219
  Serious: Yes (Hospitalization)
  Sender: FDA-Public Use
  Company Number: MC201000152

PATIENT
  Age: 81 Year
  Sex: Female
  Weight: 55 kg

DRUGS (4)
  1. ANGIOMAX [Suspect]
     Dosage: 8.3 ML, BOLUS, INTRAVENOUS; 19.3 ML, INTRAVENOUS
     Route: 042
     Dates: start: 20100507, end: 20100507
  2. HEPARIN [Concomitant]
  3. ASPIRIN [Concomitant]
  4. CLOPIDOGREL [Concomitant]

REACTIONS (1)
  - MALLORY-WEISS SYNDROME [None]
